FAERS Safety Report 4771635-1 (Version None)
Quarter: 2005Q3

REPORT INFORMATION
  Report Type: 
  Country: None (occurrence: None)
  Receive Date: 20050916
  Receipt Date: 20050831
  Transmission Date: 20060218
  Serious: Yes (Death)
  Sender: FDA-Public Use
  Company Number: 2005S1007595

PATIENT
  Age: 75 Year
  Sex: Male

DRUGS (9)
  1. CLOZAPINE [Suspect]
     Indication: DEMENTIA
     Dosage: 25 MG; QAM; PO
     Route: 048
     Dates: start: 20040201
  2. CLOZAPINE [Suspect]
     Indication: HALLUCINATION
     Dosage: 25 MG; QAM; PO
     Route: 048
     Dates: start: 20040201
  3. PANTOPRAZOLE SODIUM [Concomitant]
  4. TOLTERODINE TARTRATE [Concomitant]
  5. ATORVASTATIN [Concomitant]
  6. CARBIDOPA AND LEVODOPA [Concomitant]
  7. RIVASTIGMINE TARTRATE [Concomitant]
  8. ALPRAZOLAM [Concomitant]
  9. PRAMIPEXOLE DIHYDROCHLORIDE [Concomitant]

REACTIONS (1)
  - SUDDEN DEATH [None]
